FAERS Safety Report 13369669 (Version 1)
Quarter: 2017Q1

REPORT INFORMATION
  Report Type: Spontaneous
  Country: US (occurrence: US)
  Receive Date: 20170324
  Receipt Date: 20170324
  Transmission Date: 20170429
  Serious: No
  Sender: FDA-Public Use
  Company Number: US-ROCHE-1223565

PATIENT
  Age: 71 Year
  Sex: Female

DRUGS (2)
  1. METFORMIN [Concomitant]
     Active Substance: METFORMIN HYDROCHLORIDE
     Route: 065
  2. XOLAIR [Suspect]
     Active Substance: OMALIZUMAB
     Indication: PRODUCT USED FOR UNKNOWN INDICATION
     Route: 065

REACTIONS (6)
  - Parosmia [Unknown]
  - Tongue coated [Unknown]
  - Nasopharyngitis [Unknown]
  - Rotator cuff syndrome [Unknown]
  - Dysgeusia [Unknown]
  - Candida infection [Unknown]

NARRATIVE: CASE EVENT DATE: 201109
